FAERS Safety Report 8012980-6 (Version None)
Quarter: 2011Q4

REPORT INFORMATION
  Report Type: 
  Country: None (occurrence: None)
  Receive Date: 20111229
  Receipt Date: 20111216
  Transmission Date: 20120403
  Serious: Yes (Hospitalization)
  Sender: FDA-Public Use
  Company Number: DE-BAYER-200826691GPV

PATIENT
  Age: 67 Year
  Sex: Female
  Weight: 61 kg

DRUGS (2)
  1. GEMCITABINE [Suspect]
     Indication: BILIARY CANCER METASTATIC
     Route: 042
     Dates: start: 20080811, end: 20080908
  2. SORAFENIB (RAF KINASE INHIBITOR) [Suspect]
     Indication: BILIARY CANCER METASTATIC
     Route: 048
     Dates: start: 20080811, end: 20080910

REACTIONS (4)
  - PSYCHOTIC DISORDER [None]
  - HEADACHE [None]
  - CONFUSIONAL STATE [None]
  - VISION BLURRED [None]
